FAERS Safety Report 16068278 (Version 1)
Quarter: 2019Q1

REPORT INFORMATION
  Report Type: Report from Study
  Country: US (occurrence: US)
  Receive Date: 20190313
  Receipt Date: 20190313
  Transmission Date: 20190418
  Serious: Yes (Hospitalization)
  Sender: FDA-Public Use
  Company Number: US-TAKEDA-2019TUS012506

PATIENT
  Sex: Male

DRUGS (3)
  1. CYTOXAN [Concomitant]
     Active Substance: CYCLOPHOSPHAMIDE
  2. DEXAMETHASONE. [Concomitant]
     Active Substance: DEXAMETHASONE
  3. BORTEZOMIB. [Suspect]
     Active Substance: BORTEZOMIB
     Indication: AMYLOIDOSIS
     Dosage: UNK UNK, 1/WEEK
     Route: 058
     Dates: start: 20180124

REACTIONS (4)
  - Coronary artery disease [Unknown]
  - End stage renal disease [Unknown]
  - Off label use [Unknown]
  - Thrombocytopenia [Unknown]
